FAERS Safety Report 9061631 (Version 1)
Quarter: 2013Q1

REPORT INFORMATION
  Report Type: Spontaneous
  Country: US (occurrence: US)
  Receive Date: 20130204
  Receipt Date: 20130204
  Transmission Date: 20140127
  Serious: Yes (Death, Other)
  Sender: FDA-Public Use
  Company Number: PHEH2013US002766

PATIENT
  Age: 82 None
  Sex: Male

DRUGS (1)
  1. RECLAST [Suspect]
     Indication: OSTEOPOROSIS
     Dosage: 5 MG, UNK
     Route: 042
     Dates: start: 201201

REACTIONS (6)
  - Respiratory failure [Fatal]
  - Chronic obstructive pulmonary disease [Unknown]
  - Circulatory collapse [Unknown]
  - Cognitive disorder [Unknown]
  - Renal failure [Unknown]
  - Hyperthermia [Unknown]
